FAERS Safety Report 15961810 (Version 7)
Quarter: 2019Q3

REPORT INFORMATION
  Report Type: Spontaneous
  Country: JP (occurrence: JP)
  Receive Date: 20190214
  Receipt Date: 20190723
  Transmission Date: 20191004
  Serious: Yes (Other)
  Sender: FDA-Public Use
  Company Number: JP-ROCHE-2266005

PATIENT
  Age: 72 Year
  Sex: Male

DRUGS (5)
  1. XOFLUZA [Suspect]
     Active Substance: BALOXAVIR MARBOXIL
     Indication: INFLUENZA
     Route: 048
     Dates: start: 20190125, end: 20190125
  2. HUSCODE [Concomitant]
     Active Substance: CHLORPHENIRAMINE MALEATE\DIHYDROCODEINE PHOSPHATE\METHYLEPHEDRINE HYDROCHLORIDE, DL-
     Indication: INFLUENZA
     Route: 048
     Dates: start: 20190125, end: 20190201
  3. MUCOSOLVAN [Concomitant]
     Active Substance: AMBROXOL HYDROCHLORIDE
     Indication: INFLUENZA
     Route: 048
     Dates: start: 20190125, end: 20190201
  4. ZINGIBER OFFICINALE RHIZOME/PANAX GINSENG ROOT/ANGELICA ACUTILOBA ROOT/CITRUS RETICULATA PEEL/BUPLEU [Suspect]
     Active Substance: HERBALS
     Indication: INFLUENZA
     Route: 048
     Dates: start: 20190129, end: 20190201
  5. MAOTO [Suspect]
     Active Substance: HERBALS
     Indication: INFLUENZA
     Route: 048
     Dates: start: 20190125, end: 20190128

REACTIONS (1)
  - Interstitial lung disease [Recovering/Resolving]

NARRATIVE: CASE EVENT DATE: 20190205
